FAERS Safety Report 9799543 (Version 1)
Quarter: 2014Q1

REPORT INFORMATION
  Report Type: Spontaneous
  Country: US (occurrence: US)
  Receive Date: 20140106
  Receipt Date: 20140106
  Transmission Date: 20141002
  Serious: No
  Sender: FDA-Public Use
  Company Number: US-GILEAD-2010-0030139

PATIENT
  Age: 81 Year
  Sex: Male
  Weight: 54.43 kg

DRUGS (7)
  1. LETAIRIS [Suspect]
     Indication: PULMONARY ARTERIAL HYPERTENSION
     Route: 048
     Dates: start: 20080108
  2. NORVASC [Concomitant]
  3. STARLIX [Concomitant]
  4. METFORMIN [Concomitant]
  5. CRESTOR [Concomitant]
  6. ROZEREM [Concomitant]
  7. ACTOS [Concomitant]

REACTIONS (1)
  - Swelling [Unknown]
